FAERS Safety Report 4585290-7 (Version None)
Quarter: 2005Q1

REPORT INFORMATION
  Report Type: 
  Country: None (occurrence: None)
  Receive Date: 20050214
  Receipt Date: 20050131
  Transmission Date: 20050727
  Serious: Yes (Other)
  Sender: FDA-Public Use
  Company Number: 2005022892

PATIENT
  Sex: Female

DRUGS (9)
  1. CELEBREX [Suspect]
     Indication: PAIN
     Dosage: ORAL
  2. BEXTRA [Suspect]
     Indication: PAIN
     Dosage: 10 MG (10 MG, 1 IN 1 D), ORAL
     Route: 048
  3. ROFECOXIB [Suspect]
     Indication: PAIN
     Dates: end: 20040701
  4. WARFARIN SODIUM [Concomitant]
  5. ACETYLSALICYLIC ACID SRT [Concomitant]
  6. PANTOPRAZOLE (PANTOPRAZOLE) [Concomitant]
  7. METOPROLOL TARTRATE [Concomitant]
  8. ATORVASTATIN (ATORVASTATIN) [Concomitant]
  9. ISOSORBIDE DINITRATE [Concomitant]

REACTIONS (4)
  - ACCIDENTAL OVERDOSE [None]
  - DRUG INEFFECTIVE [None]
  - FEELING ABNORMAL [None]
  - MEDICATION ERROR [None]
